FAERS Safety Report 14665959 (Version 5)
Quarter: 2024Q4

REPORT INFORMATION
  Report Type: Spontaneous
  Country: FR (occurrence: FR)
  Receive Date: 20180321
  Receipt Date: 20241119
  Transmission Date: 20250114
  Serious: Yes (Hospitalization)
  Sender: BIOMARIN
  Company Number: None

PATIENT

DRUGS (12)
  1. NAGLAZYME [Suspect]
     Active Substance: GALSULFASE
     Indication: Mucopolysaccharidosis VI
     Dosage: 1 MG/KG, QW
     Route: 042
  2. SEVOFLURANE [Suspect]
     Active Substance: SEVOFLURANE
     Indication: Anaesthesia
  3. DIPRIVAN [Suspect]
     Active Substance: PROPOFOL
     Indication: Anaesthesia
     Dosage: UNK UNK, QW
     Route: 065
  4. PERFALGAN [Concomitant]
     Active Substance: ACETAMINOPHEN
     Indication: Anaesthesia
     Route: 065
  5. DEXTROSE [Concomitant]
     Active Substance: DEXTROSE MONOHYDRATE
     Indication: Anaesthesia
     Route: 065
  6. TRACRIUM [Concomitant]
     Active Substance: ATRACURIUM BESYLATE
     Indication: Anaesthesia
     Route: 065
  7. SUCCINYLCHOLINE [Concomitant]
     Active Substance: SUCCINYLCHOLINE\SUCCINYLCHOLINE CHLORIDE
     Indication: Anaesthesia
     Route: 065
  8. SUFENTA [Concomitant]
     Active Substance: SUFENTANIL CITRATE
     Indication: Anaesthesia
     Route: 065
  9. ONDANSETRON [Concomitant]
     Active Substance: ONDANSETRON
     Indication: Anaesthesia
     Route: 065
  10. MORPHINE [Concomitant]
     Active Substance: MORPHINE
     Indication: Anaesthesia
     Route: 065
  11. SUCCINYLCHOLINE [Concomitant]
     Active Substance: SUCCINYLCHOLINE\SUCCINYLCHOLINE CHLORIDE
     Indication: Anaesthesia
     Route: 065
  12. ONDANSETRON [Concomitant]
     Active Substance: ONDANSETRON
     Indication: Anaesthesia
     Route: 065

REACTIONS (7)
  - Glomerulonephritis membranous [Recovered/Resolved]
  - Oedema peripheral [Unknown]
  - Hypertension [Unknown]
  - Proteinuria [Recovered/Resolved]
  - Hypoalbuminaemia [Unknown]
  - Haematuria [Unknown]
  - Developmental hip dysplasia [Unknown]
